FAERS Safety Report 10715055 (Version 1)
Quarter: 2015Q1

REPORT INFORMATION
  Report Type: Spontaneous
  Country: MY (occurrence: MY)
  Receive Date: 20150115
  Receipt Date: 20150115
  Transmission Date: 20150721
  Serious: Yes (Other)
  Sender: FDA-Public Use
  Company Number: MY-GLAXOSMITHKLINE-MY2015GSK002716

PATIENT
  Age: 17 Month
  Sex: Female

DRUGS (1)
  1. OMACOR [Suspect]
     Active Substance: OMEGA-3-ACID ETHYL ESTERS
     Indication: PRODUCT USED FOR UNKNOWN INDICATION
     Dosage: 1000 MG, UNK
     Route: 048

REACTIONS (5)
  - No adverse event [Not Recovered/Not Resolved]
  - Chemical poisoning [Unknown]
  - Product container issue [Unknown]
  - Off label use [Unknown]
  - Product contamination chemical [Unknown]
